FAERS Safety Report 14520762 (Version 1)
Quarter: 2018Q1

REPORT INFORMATION
  Report Type: Report from Study
  Country: US (occurrence: US)
  Receive Date: 20180212
  Receipt Date: 20180212
  Transmission Date: 20180509
  Serious: Yes (Hospitalization, Congenital Anomaly, Other)
  Sender: FDA-Public Use
  Company Number: US-AMAG PHARMACEUTICALS, INC.-AMAG201703361

PATIENT

DRUGS (1)
  1. MAKENA [Suspect]
     Active Substance: HYDROXYPROGESTERONE CAPROATE
     Indication: FOETAL EXPOSURE DURING PREGNANCY
     Dosage: 250 MG/ML, WEEKLY
     Route: 064
     Dates: start: 20170707, end: 20171006

REACTIONS (11)
  - Hyperbilirubinaemia neonatal [Unknown]
  - Neonatal respiratory distress syndrome [Unknown]
  - Neonatal respiratory failure [Unknown]
  - Infantile apnoea [Unknown]
  - Small for dates baby [Unknown]
  - Malnutrition [Unknown]
  - Atrial septal defect [Unknown]
  - Premature baby [Recovered/Resolved with Sequelae]
  - Poor feeding infant [Unknown]
  - Anaemia neonatal [Unknown]
  - Femur fracture [Unknown]

NARRATIVE: CASE EVENT DATE: 20171010
